FAERS Safety Report 17098126 (Version 4)
Quarter: 2020Q1

REPORT INFORMATION
  Report Type: Spontaneous
  Country: US (occurrence: US)
  Receive Date: 20191202
  Receipt Date: 20200116
  Transmission Date: 20200409
  Serious: Yes (Death)
  Sender: FDA-Public Use
  Company Number: US-PFIZER INC-2019514577

PATIENT
  Age: 60 Year
  Sex: Male

DRUGS (1)
  1. XALKORI [Suspect]
     Active Substance: CRIZOTINIB
     Indication: OESOPHAGEAL CARCINOMA
     Dosage: 250 MG, UNK

REACTIONS (7)
  - Death [Fatal]
  - Anaemia [Recovering/Resolving]
  - Product use in unapproved indication [Unknown]
  - Anaemia folate deficiency [Unknown]
  - Leukocytosis [Unknown]
  - Anaemia vitamin B12 deficiency [Unknown]
  - Off label use [Unknown]

NARRATIVE: CASE EVENT DATE: 20200101
